FAERS Safety Report 7441810-6 (Version None)
Quarter: 2011Q2

REPORT INFORMATION
  Report Type: 
  Country: None (occurrence: None)
  Receive Date: 20110428
  Receipt Date: 20110415
  Transmission Date: 20111010
  Serious: Yes (Hospitalization)
  Sender: FDA-Public Use
  Company Number: RO-JNJFOC-20110407243

PATIENT
  Sex: Male

DRUGS (8)
  1. FRESUBIN [Concomitant]
     Indication: MALNUTRITION
     Route: 048
  2. REMICADE [Suspect]
     Indication: CROHN'S DISEASE
     Route: 042
  3. FOLIC ACID [Concomitant]
     Indication: ANAEMIA
     Route: 048
  4. CLARITIN [Concomitant]
     Route: 048
  5. REMICADE [Suspect]
     Route: 042
  6. HYDROCORTISONE HEMISUCCINATE [Concomitant]
     Indication: PREMEDICATION
     Route: 065
  7. REMICADE [Suspect]
     Route: 042
  8. MALTOFER [Concomitant]
     Indication: ANAEMIA
     Route: 048

REACTIONS (11)
  - OEDEMA [None]
  - BRONCHOSPASM [None]
  - INFUSION RELATED REACTION [None]
  - LIVEDO RETICULARIS [None]
  - PYREXIA [None]
  - RASH [None]
  - PRURITUS [None]
  - CYANOSIS [None]
  - CHEST DISCOMFORT [None]
  - DYSPNOEA [None]
  - SKIN LESION [None]
